FAERS Safety Report 7359327-6 (Version None)
Quarter: 2011Q1

REPORT INFORMATION
  Report Type: 
  Country: None (occurrence: None)
  Receive Date: 20110317
  Receipt Date: 20090921
  Transmission Date: 20110831
  Serious: No
  Sender: FDA-Public Use
  Company Number: US-PFIZER INC-2009258490

PATIENT
  Sex: Female
  Weight: 88.45 kg

DRUGS (2)
  1. NORVASC [Suspect]
     Indication: STRESS AT WORK
     Dosage: 10 MG, 1X/DAY
     Dates: start: 20030101
  2. ATORVASTATIN CALCIUM [Suspect]
     Dosage: UNK

REACTIONS (3)
  - PHOTOSENSITIVITY REACTION [None]
  - BLISTER [None]
  - RASH [None]
